FAERS Safety Report 12691802 (Version 1)
Quarter: 2016Q3

REPORT INFORMATION
  Report Type: Spontaneous
  Country: US (occurrence: US)
  Receive Date: 20160826
  Receipt Date: 20160826
  Transmission Date: 20161109
  Serious: No
  Sender: FDA-Public Use
  Company Number: US-PRINSTON PHARMACEUTICAL INC.-2016PRN00014

PATIENT
  Age: 44 Year
  Sex: Female
  Weight: 54.42 kg

DRUGS (1)
  1. LISINOPRIL. [Suspect]
     Active Substance: LISINOPRIL
     Indication: BLOOD PRESSURE MEASUREMENT
     Dosage: 5 MG, 1X/DAY
     Route: 048
     Dates: start: 20160118, end: 20160121

REACTIONS (4)
  - Lethargy [Recovering/Resolving]
  - Disturbance in attention [Recovering/Resolving]
  - Palpitations [Recovering/Resolving]
  - Nervousness [Recovering/Resolving]

NARRATIVE: CASE EVENT DATE: 201601
